FAERS Safety Report 23674560 (Version 1)
Quarter: 2024Q1

REPORT INFORMATION
  Report Type: Spontaneous
  Country: US (occurrence: US)
  Receive Date: 20240326
  Receipt Date: 20240326
  Transmission Date: 20240410
  Serious: No
  Sender: FDA-Public Use
  Company Number: US-ABBVIE-5687118

PATIENT
  Sex: Female

DRUGS (2)
  1. LATISSE [Suspect]
     Active Substance: BIMATOPROST
     Indication: Growth of eyelashes
     Dosage: BIMATOPROST 0.3MG/ML SOL
     Route: 047
     Dates: start: 20240229
  2. LATISSE [Suspect]
     Active Substance: BIMATOPROST
     Dosage: BIMATOPROST 0.3MG/ML SOL
     Route: 047

REACTIONS (2)
  - Eye irritation [Recovered/Resolved]
  - Eye irritation [Unknown]

NARRATIVE: CASE EVENT DATE: 20240101
